FAERS Safety Report 9416355 (Version 1)
Quarter: 2013Q3

REPORT INFORMATION
  Report Type: Spontaneous
  Country: PL (occurrence: PL)
  Receive Date: 20130724
  Receipt Date: 20130724
  Transmission Date: 20140515
  Serious: Yes (Life-Threatening, Hospitalization, Other)
  Sender: FDA-Public Use
  Company Number: PL-ROCHE-1229990

PATIENT
  Age: 36 Year
  Sex: Female
  Weight: 60 kg

DRUGS (4)
  1. MABTHERA [Suspect]
     Indication: RHEUMATOID ARTHRITIS
     Route: 041
     Dates: start: 20130610
  2. PARACETAMOL [Concomitant]
  3. METHOTREXAT [Concomitant]
  4. PHENAZOLINUM [Concomitant]

REACTIONS (10)
  - Serum sickness [Recovering/Resolving]
  - Pyrexia [Recovering/Resolving]
  - Abdominal pain upper [Recovering/Resolving]
  - Leukopenia [Recovering/Resolving]
  - Thrombocytopenia [Recovering/Resolving]
  - Hepatic enzyme increased [Recovering/Resolving]
  - Fibrin D dimer increased [Recovering/Resolving]
  - Eosinophilia [Recovering/Resolving]
  - Anaemia [Recovering/Resolving]
  - Hepatomegaly [Recovering/Resolving]
